FAERS Safety Report 5067916-7 (Version None)
Quarter: 2006Q3

REPORT INFORMATION
  Report Type: 
  Country: None (occurrence: None)
  Receive Date: 20060802
  Receipt Date: 20060726
  Transmission Date: 20061208
  Serious: Yes (Death)
  Sender: FDA-Public Use
  Company Number: PHBS2006FI11094

PATIENT
  Sex: Female

DRUGS (1)
  1. GLEEVEC [Suspect]
     Route: 048
     Dates: start: 20050101, end: 20060101

REACTIONS (5)
  - CEREBRAL INFARCTION [None]
  - EOSINOPHILIA [None]
  - LABOUR COMPLICATION [None]
  - MYOCARDIAL INFARCTION [None]
  - SEPTIC SHOCK [None]
